FAERS Safety Report 8032157-8 (Version None)
Quarter: 2012Q1

REPORT INFORMATION
  Report Type: 
  Country: None (occurrence: None)
  Receive Date: 20120109
  Receipt Date: 20111216
  Transmission Date: 20120608
  Serious: Yes (Hospitalization)
  Sender: FDA-Public Use
  Company Number: PHEH2011US011869

PATIENT
  Age: 85 Year
  Sex: Female

DRUGS (8)
  1. DIOVAN [Suspect]
     Dosage: 40 MG, PER DAY
  2. NEXIUM [Concomitant]
     Indication: ABDOMINAL DISCOMFORT
  3. PRADAXA [Concomitant]
  4. AMIODARONE HCL [Suspect]
     Dosage: 800 MG, BID
  5. ZETIA [Concomitant]
  6. LIPITOR [Concomitant]
  7. FUROSEMIDE [Suspect]
     Dosage: 20 MG, PER DAY
  8. METOPROLOL SUCCINATE [Suspect]
     Dosage: 1 DF, BID

REACTIONS (2)
  - HEART RATE DECREASED [None]
  - DEHYDRATION [None]
